FAERS Safety Report 9152490 (Version 2)
Quarter: 2015Q4

REPORT INFORMATION
  Report Type: Spontaneous
  Country: JP (occurrence: JP)
  Receive Date: 20130308
  Receipt Date: 20151202
  Transmission Date: 20160305
  Serious: Yes (Disabling, Other)
  Sender: FDA-Public Use
  Company Number: JP-ASTRAZENECA-2013SE13925

PATIENT
  Age: 65 Year
  Sex: Female
  Weight: 65 kg

DRUGS (1)
  1. MARCAINE [Suspect]
     Active Substance: BUPIVACAINE HYDROCHLORIDE
     Indication: SPINAL ANAESTHESIA
     Route: 029
     Dates: start: 20121122, end: 20121122

REACTIONS (3)
  - Movement disorder [Unknown]
  - Hypoaesthesia [Recovered/Resolved with Sequelae]
  - Diplegia [Unknown]

NARRATIVE: CASE EVENT DATE: 20121123
